FAERS Safety Report 10063156 (Version 1)
Quarter: 2014Q1

REPORT INFORMATION
  Report Type: Spontaneous
  Country: US (occurrence: None)
  Receive Date: 20140318
  Receipt Date: 20140318
  Transmission Date: 20141002
  Serious: Yes (Other)
  Sender: FDA-Public Use
  Company Number: MYVW-PR-1308S-0076

PATIENT
  Age: 64 Year
  Sex: Female
  Weight: 50.8 kg

DRUGS (8)
  1. MYOVIEW [Suspect]
     Indication: CHEST PAIN
     Dosage: 370 MBQ, SINGLE DOSE, INTRAVENOUS
     Route: 042
     Dates: start: 20130807, end: 20130807
  2. MYOVIEW [Suspect]
     Indication: DYSPNOEA
     Dosage: 370 MBQ, SINGLE DOSE, INTRAVENOUS
     Route: 042
     Dates: start: 20130807, end: 20130807
  3. MYOVIEW [Suspect]
     Indication: DIAGNOSTIC PROCEDURE
     Dosage: 370 MBQ, SINGLE DOSE, INTRAVENOUS
     Route: 042
     Dates: start: 20130807, end: 20130807
  4. CHOLECALCIFEROL (COLECALCIFEROL) [Concomitant]
  5. FISH OIL PILL (FISH OIL) [Concomitant]
  6. FOLBIC (HEPAGRISEVIT FORTE-N) [Concomitant]
  7. LEVOTHYROXINE (LEVOTHYROXINE) [Concomitant]
  8. MULTIVITAMIN (ERGOCALCIFEROL) [Concomitant]

REACTIONS (1)
  - Urticaria [None]
